FAERS Safety Report 22241873 (Version 1)
Quarter: 2023Q2

REPORT INFORMATION
  Report Type: Report from Study
  Country: US (occurrence: US)
  Receive Date: 20230421
  Receipt Date: 20230421
  Transmission Date: 20230722
  Serious: Yes (Death, Hospitalization)
  Sender: FDA-Public Use
  Company Number: US-TEVA-2023-US-2878757

PATIENT
  Age: 70 Year
  Sex: Male

DRUGS (1)
  1. BOSENTAN [Suspect]
     Active Substance: BOSENTAN
     Indication: Pulmonary hypertension
     Dosage: 125 MILLIGRAM DAILY;
     Route: 048
     Dates: start: 20190627, end: 20230314

REACTIONS (5)
  - Death [Fatal]
  - Headache [Unknown]
  - Subdural haematoma [Unknown]
  - Mydriasis [Unknown]
  - Craniotomy [Unknown]

NARRATIVE: CASE EVENT DATE: 20230313
